FAERS Safety Report 16156792 (Version 2)
Quarter: 2019Q2

REPORT INFORMATION
  Report Type: Report from Study
  Country: EG (occurrence: EG)
  Receive Date: 20190404
  Receipt Date: 20190418
  Transmission Date: 20190711
  Serious: Yes (Other)
  Sender: FDA-Public Use
  Company Number: PHHY2019EG072102

PATIENT
  Age: 33 Year
  Sex: Female

DRUGS (1)
  1. TASIGNA [Suspect]
     Active Substance: NILOTINIB
     Indication: CHRONIC MYELOID LEUKAEMIA
     Dosage: 800 MG, QD
     Route: 048

REACTIONS (12)
  - Vomiting [Not Recovered/Not Resolved]
  - Normal newborn [Unknown]
  - Blood calcium decreased [Unknown]
  - Weight decreased [Not Recovered/Not Resolved]
  - Nausea [Recovered/Resolved]
  - Decreased appetite [Not Recovered/Not Resolved]
  - Dizziness [Recovered/Resolved]
  - Maternal exposure during pregnancy [Unknown]
  - Abdominal pain upper [Recovered/Resolved]
  - Splenomegaly [Not Recovered/Not Resolved]
  - Abdominal pain [Not Recovered/Not Resolved]
  - Somnolence [Not Recovered/Not Resolved]

NARRATIVE: CASE EVENT DATE: 2015
